FAERS Safety Report 24008371 (Version 1)
Quarter: 2024Q2

REPORT INFORMATION
  Report Type: Spontaneous
  Country: US (occurrence: None)
  Receive Date: 20240625
  Receipt Date: 20240625
  Transmission Date: 20240716
  Serious: Yes (Other)
  Sender: FDA-Public Use
  Company Number: 2024A143502

PATIENT

DRUGS (5)
  1. FARXIGA [Suspect]
     Active Substance: DAPAGLIFLOZIN PROPANEDIOL
     Route: 048
  2. CARVEDILOL [Concomitant]
     Active Substance: CARVEDILOL
  3. ENTRESTO [Concomitant]
     Active Substance: SACUBITRIL\VALSARTAN
  4. SPIRONOLACTONE [Concomitant]
     Active Substance: SPIRONOLACTONE
  5. ELIQUIS [Concomitant]
     Active Substance: APIXABAN

REACTIONS (8)
  - Deep vein thrombosis [Unknown]
  - Pulmonary embolism [Unknown]
  - Cardiac failure [Unknown]
  - Thrombosis [Unknown]
  - Antiphospholipid syndrome [Unknown]
  - Sleep apnoea syndrome [Unknown]
  - Ejection fraction decreased [Unknown]
  - COVID-19 [Unknown]
